FAERS Safety Report 5247183-1 (Version None)
Quarter: 2007Q1

REPORT INFORMATION
  Report Type: 
  Country: None (occurrence: None)
  Receive Date: 20070221
  Receipt Date: 20070213
  Transmission Date: 20070707
  Serious: Yes (Hospitalization)
  Sender: FDA-Public Use
  Company Number: 231152K07USA

PATIENT
  Age: 51 Year
  Sex: Female

DRUGS (5)
  1. REBIF [Suspect]
     Indication: MULTIPLE SCLEROSIS
     Dosage: 44 MCG, 3 IN 1 WEEKS, SUBCUTANEOUS
     Route: 058
     Dates: start: 20060614, end: 20061001
  2. TEGRETOL [Concomitant]
  3. DILANTIN [Concomitant]
  4. STEROIDS (CORTICOSTERIODS) [Concomitant]
  5. PROTONIX [Concomitant]

REACTIONS (4)
  - MEDICAL DEVICE COMPLICATION [None]
  - PANCREATIC DISORDER [None]
  - PANCREATIC DUCT DILATATION [None]
  - PANCREATITIS [None]
